FAERS Safety Report 10633003 (Version 2)
Quarter: 2014Q4

REPORT INFORMATION
  Report Type: Spontaneous
  Country: US (occurrence: US)
  Receive Date: 20141205
  Receipt Date: 20141205
  Transmission Date: 20150529
  Serious: No
  Sender: FDA-Public Use
  Company Number: US-BRISTOL-MYERS SQUIBB COMPANY-21331251

PATIENT
  Age: 84 Year
  Sex: Male
  Weight: 79.36 kg

DRUGS (5)
  1. ELIQUIS [Suspect]
     Active Substance: APIXABAN
     Indication: CEREBROVASCULAR ACCIDENT PROPHYLAXIS
     Dates: start: 20140812, end: 20140903
  2. CARVEDILOL. [Concomitant]
     Active Substance: CARVEDILOL
     Dosage: 1 DF=6.25 NO UNITS
  3. DILTIAZEM HCL [Concomitant]
     Active Substance: DILTIAZEM HYDROCHLORIDE
     Dosage: 1 DF=180 NO UNITS
  4. MELATONIN [Concomitant]
     Active Substance: MELATONIN
     Dosage: QHS
  5. FLUTICASONE PROPIONATE. [Concomitant]
     Active Substance: FLUTICASONE PROPIONATE
     Dosage: 50MCG QHS

REACTIONS (2)
  - Blood urine present [Unknown]
  - Limb injury [Unknown]

NARRATIVE: CASE EVENT DATE: 20140812
